FAERS Safety Report 25173497 (Version 7)
Quarter: 2025Q4

REPORT INFORMATION
  Report Type: Spontaneous
  Country: CO (occurrence: CO)
  Receive Date: 20250408
  Receipt Date: 20251009
  Transmission Date: 20260118
  Serious: No
  Sender: PFIZER
  Company Number: CO-PFIZER INC-202500071141

PATIENT
  Age: 11 Year
  Sex: Female

DRUGS (2)
  1. GENOTROPIN [Suspect]
     Active Substance: SOMATROPIN
     Dosage: 0.6 MG, DAILY
  2. GENOTROPIN [Suspect]
     Active Substance: SOMATROPIN
     Dosage: 0.8 MG, DAILY

REACTIONS (1)
  - Device leakage [Unknown]
